FAERS Safety Report 15744310 (Version 3)
Quarter: 2019Q2

REPORT INFORMATION
  Report Type: Spontaneous
  Country: JP (occurrence: JP)
  Receive Date: 20181220
  Receipt Date: 20190517
  Transmission Date: 20190711
  Serious: Yes (Death, Other)
  Sender: FDA-Public Use
  Company Number: JP-BRISTOL-MYERS SQUIBB COMPANY-BMS-2018-119676

PATIENT
  Age: 77 Year
  Sex: Male
  Weight: 71.4 kg

DRUGS (4)
  1. OPDIVO [Suspect]
     Active Substance: NIVOLUMAB
     Indication: METASTATIC RENAL CELL CARCINOMA
     Dosage: 190 MILLIGRAM, Q2WK
     Route: 041
     Dates: start: 20170601, end: 20171222
  2. OPDIVO [Suspect]
     Active Substance: NIVOLUMAB
     Indication: PRODUCT USED FOR UNKNOWN INDICATION
     Dosage: 180 MILLIGRAM, Q2WK
     Route: 041
     Dates: start: 20180105, end: 20180427
  3. NEXAVAR [Suspect]
     Active Substance: SORAFENIB
     Indication: PRODUCT USED FOR UNKNOWN INDICATION
     Dosage: 400 MILLIGRAM
     Route: 065
     Dates: start: 20180609, end: 20180907
  4. NEXAVAR [Suspect]
     Active Substance: SORAFENIB
     Indication: METASTATIC RENAL CELL CARCINOMA
     Dosage: 400 MILLIGRAM
     Route: 065
     Dates: start: 20180516, end: 20180529

REACTIONS (4)
  - Malignant neoplasm progression [Unknown]
  - Road traffic accident [Fatal]
  - Rash [Recovering/Resolving]
  - Splenic rupture [Fatal]

NARRATIVE: CASE EVENT DATE: 2018
